FAERS Safety Report 21763307 (Version 1)
Quarter: 2022Q4

REPORT INFORMATION
  Report Type: Report from Study
  Country: GB (occurrence: GB)
  Receive Date: 20221221
  Receipt Date: 20221221
  Transmission Date: 20230113
  Serious: Yes (Death, Hospitalization, Other)
  Sender: FDA-Public Use
  Company Number: GB-002147023-NVSC2022GB289157

PATIENT

DRUGS (16)
  1. RUXOLITINIB [Suspect]
     Active Substance: RUXOLITINIB
     Indication: Myelofibrosis
     Dosage: 10 MG, BID
     Route: 048
     Dates: start: 20180418, end: 20221121
  2. RUXOLITINIB [Suspect]
     Active Substance: RUXOLITINIB
     Dosage: 10 MG, BID
     Route: 048
     Dates: start: 20221124, end: 20221127
  3. NAVITOCLAX [Suspect]
     Active Substance: NAVITOCLAX
     Indication: Myelofibrosis
     Dosage: 100 MG, QD
     Route: 048
     Dates: start: 20180418, end: 20221121
  4. THYROXINE [Concomitant]
     Active Substance: LEVOTHYROXINE
     Indication: Hypothyroidism
     Dosage: 175 MG, QD
     Route: 065
     Dates: start: 2013
  5. ASPIRIN [Concomitant]
     Active Substance: ASPIRIN
     Indication: Thrombosis prophylaxis
     Dosage: 75 MG, QD
     Route: 065
     Dates: start: 2004
  6. QUININE SULFATE NISSHIN KYORIN SEI [Concomitant]
     Indication: Muscle spasms
     Dosage: 300 MG, PRN (AS NECESSARY)
     Route: 065
     Dates: start: 20160518
  7. ACETAMINOPHEN [Concomitant]
     Active Substance: ACETAMINOPHEN
     Indication: Headache
     Dosage: 1000 MG, PRN (AS NECESSARY)
     Route: 065
     Dates: start: 20180501
  8. ACETAMINOPHEN [Concomitant]
     Active Substance: ACETAMINOPHEN
     Indication: Migraine
  9. ACETAMINOPHEN [Concomitant]
     Active Substance: ACETAMINOPHEN
     Indication: Vitreous floaters
  10. LEVETIRACETAM CF [Concomitant]
     Indication: Seizure
     Dosage: 250 MG, BID
     Route: 065
     Dates: start: 20210425
  11. AMLODIPINE GT [Concomitant]
     Indication: Hypertension
     Dosage: 10 MG, QD
     Route: 065
     Dates: start: 202009
  12. CLOPIDOGREL [Concomitant]
     Active Substance: CLOPIDOGREL BISULFATE
     Indication: Cerebrovascular accident
     Dosage: 75 MG, QD
     Route: 065
     Dates: start: 202009
  13. BETAHISTINE RPG [Concomitant]
     Indication: Meniere^s disease
     Dosage: 16 MG, TID
     Route: 065
     Dates: start: 202009
  14. LEVETIRACETAM CT [Concomitant]
     Indication: Seizure
     Dosage: 250 MG, BID
     Route: 065
     Dates: start: 20210426
  15. LEVOTHYROXINE [Concomitant]
     Active Substance: LEVOTHYROXINE
     Indication: Hypothyroidism
     Dosage: 150 MG, QD
     Route: 065
     Dates: start: 20210611
  16. FERROUS SULPHATE ARROW [Concomitant]
     Indication: Mineral supplementation
     Dosage: 200 MG, BID
     Route: 065
     Dates: start: 20210611

REACTIONS (3)
  - Fall [Fatal]
  - Hip fracture [Fatal]
  - Renal impairment [Not Recovered/Not Resolved]

NARRATIVE: CASE EVENT DATE: 20221121
